FAERS Safety Report 10348141 (Version 1)
Quarter: 2014Q3

REPORT INFORMATION
  Report Type: Spontaneous
  Country: ES (occurrence: ES)
  Receive Date: 20140729
  Receipt Date: 20140729
  Transmission Date: 20150326
  Serious: Yes (Other)
  Sender: FDA-Public Use
  Company Number: ES-ELI_LILLY_AND_COMPANY-ES201407010304

PATIENT
  Age: 57 Year
  Sex: Female

DRUGS (2)
  1. VIMOVO [Interacting]
     Active Substance: ESOMEPRAZOLE MAGNESIUM\NAPROXEN
     Indication: FIBROMYALGIA
     Dosage: UNK, BID
     Route: 048
     Dates: start: 20140620, end: 20140701
  2. CYMBALTA [Suspect]
     Active Substance: DULOXETINE HYDROCHLORIDE
     Indication: FIBROMYALGIA
     Dosage: 60 MG, QD
     Route: 065
     Dates: start: 20140606, end: 20140701

REACTIONS (4)
  - Haematoma [Unknown]
  - Platelet count decreased [Unknown]
  - Drug interaction [Unknown]
  - Aphthous stomatitis [Unknown]

NARRATIVE: CASE EVENT DATE: 201406
